FAERS Safety Report 18900042 (Version 2)
Quarter: 2021Q1

REPORT INFORMATION
  Report Type: Spontaneous
  Country: AU (occurrence: AU)
  Receive Date: 20210216
  Receipt Date: 20210310
  Transmission Date: 20210420
  Serious: Yes (Hospitalization, Other)
  Sender: FDA-Public Use
  Company Number: NVSC2021AU032725

PATIENT
  Sex: Male

DRUGS (1)
  1. ROSUVASTATIN SANDOZ [Suspect]
     Active Substance: ROSUVASTATIN CALCIUM
     Indication: PRODUCT USED FOR UNKNOWN INDICATION
     Dosage: 10 MG, OT
     Route: 065

REACTIONS (9)
  - Loss of consciousness [Unknown]
  - Dizziness [Unknown]
  - Loss of consciousness [Recovered/Resolved]
  - Musculoskeletal chest pain [Unknown]
  - Vomiting [Unknown]
  - Sluggishness [Unknown]
  - Fatigue [Unknown]
  - Musculoskeletal chest pain [Recovered/Resolved]
  - Tremor [Unknown]
